FAERS Safety Report 25662493 (Version 3)
Quarter: 2025Q4

REPORT INFORMATION
  Report Type: Spontaneous
  Country: CN (occurrence: CN)
  Receive Date: 20250810
  Receipt Date: 20251125
  Transmission Date: 20260117
  Serious: Yes (Hospitalization)
  Sender: MERCK SHARP & DOHME LLC
  Company Number: CN-SICHUAN KELUN- BIOTECH BIOPHARMACEUTICAL CO. LTD.-2025KB000161

PATIENT
  Age: 55 Year
  Sex: Male
  Weight: 78.5 kg

DRUGS (2)
  1. SACITUZUMAB GOVITECAN [Suspect]
     Active Substance: SACITUZUMAB GOVITECAN
     Indication: Lung adenocarcinoma stage IV
     Route: 041
     Dates: start: 20250714, end: 20250714
  2. SODIUM CHLORIDE [Suspect]
     Active Substance: SODIUM CHLORIDE
     Route: 004
     Dates: start: 20250714, end: 20250714

REACTIONS (4)
  - Neutrophil count decreased [Recovering/Resolving]
  - Dermatitis acneiform [Recovering/Resolving]
  - White blood cell count decreased [Recovering/Resolving]
  - Platelet count decreased [Recovering/Resolving]

NARRATIVE: CASE EVENT DATE: 20250721
